FAERS Safety Report 5853775-9 (Version None)
Quarter: 2008Q3

REPORT INFORMATION
  Report Type: 
  Country: None (occurrence: None)
  Receive Date: 20080822
  Receipt Date: 20080819
  Transmission Date: 20090109
  Serious: Yes (Death, Hospitalization)
  Sender: FDA-Public Use
  Company Number: DE-AVENTIS-200812120DE

PATIENT
  Age: 58 Year
  Sex: Female

DRUGS (3)
  1. ARAVA [Suspect]
     Indication: RHEUMATOID ARTHRITIS
     Dosage: DOSE: NOT REPORTED
     Route: 048
     Dates: start: 20030401, end: 20040501
  2. ANALGESICS [Concomitant]
     Dosage: DOSE: NOT REPORTED
     Dates: start: 20030403, end: 20041101
  3. GLUCOCORTICOIDS [Concomitant]
     Dosage: DOSE: 5 TO 10
     Dates: start: 20030403, end: 20041101

REACTIONS (4)
  - ABDOMINAL PAIN [None]
  - BILE DUCT STENOSIS [None]
  - METASTASES TO LIVER [None]
  - PANCREATIC CARCINOMA [None]
